FAERS Safety Report 8393338-7 (Version None)
Quarter: 2012Q2

REPORT INFORMATION
  Report Type: 
  Country: None (occurrence: None)
  Receive Date: 20120529
  Receipt Date: 20120518
  Transmission Date: 20120825
  Serious: Yes (Hospitalization, Other)
  Sender: FDA-Public Use
  Company Number: US-JNJFOC-20120516742

PATIENT
  Sex: Female
  Weight: 31.3 kg

DRUGS (1)
  1. REMICADE [Suspect]
     Indication: CROHN'S DISEASE
     Route: 042
     Dates: start: 20091030, end: 20100527

REACTIONS (3)
  - MALNUTRITION [None]
  - CLOSTRIDIAL INFECTION [None]
  - CROHN'S DISEASE [None]
